FAERS Safety Report 10600572 (Version 1)
Quarter: 2014Q4

REPORT INFORMATION
  Report Type: Spontaneous
  Country: US (occurrence: US)
  Receive Date: 20141124
  Receipt Date: 20141124
  Transmission Date: 20150529
  Serious: Yes (Other)
  Sender: FDA-Public Use
  Company Number: US-CIPLA LTD.-2014US01997

PATIENT

DRUGS (3)
  1. THIORIDAZINE [Suspect]
     Active Substance: THIORIDAZINE
  2. AMLODIPINE [Suspect]
     Active Substance: AMLODIPINE BESYLATE
  3. ATENOLOL. [Suspect]
     Active Substance: ATENOLOL

REACTIONS (3)
  - Shock [Recovered/Resolved]
  - Hypokalaemia [Recovered/Resolved]
  - Tachycardia [Recovered/Resolved]
